APPROVED DRUG PRODUCT: UNASYN
Active Ingredient: AMPICILLIN SODIUM; SULBACTAM SODIUM
Strength: EQ 2GM BASE/VIAL;EQ 1GM BASE/VIAL
Dosage Form/Route: INJECTABLE;INJECTION
Application: A062901 | Product #002
Applicant: PFIZER LABORATORIES DIV PFIZER INC
Approved: Feb 27, 1992 | RLD: No | RS: No | Type: DISCN